FAERS Safety Report 8124231-2 (Version None)
Quarter: 2012Q1

REPORT INFORMATION
  Report Type: 
  Country: None (occurrence: None)
  Receive Date: 20120209
  Receipt Date: 20120208
  Transmission Date: 20120608
  Serious: Yes (Death)
  Sender: FDA-Public Use
  Company Number: GB-BRISTOL-MYERS SQUIBB COMPANY-16354979

PATIENT
  Age: 64 Year
  Sex: Male
  Weight: 104 kg

DRUGS (20)
  1. PAROXETINE [Concomitant]
     Indication: DEPRESSION
     Route: 048
     Dates: start: 20111207
  2. VENTOLIN [Concomitant]
     Indication: CHRONIC OBSTRUCTIVE PULMONARY DISEASE
     Route: 045
     Dates: start: 20060524
  3. PREDNISOLONE [Concomitant]
     Dates: start: 20111123
  4. FUROSEMIDE [Concomitant]
     Indication: OEDEMA
     Route: 048
     Dates: start: 20060607
  5. AMOXICILLIN [Concomitant]
     Dosage: CAPS
     Dates: start: 20111123
  6. GABAPENTIN [Concomitant]
     Dosage: CAPS ONCE DAILY ON DAY1, TWICE DAILY ON DAY 2, THEN 3 TIMES DAILY
     Dates: start: 20111031
  7. CETIRIZINE [Concomitant]
     Dates: start: 20111128
  8. ETORICOXIB [Concomitant]
     Indication: OSTEOARTHRITIS
     Route: 048
     Dates: start: 20101129
  9. OMEPRAZOLE [Concomitant]
     Indication: HIATUS HERNIA
     Route: 048
     Dates: start: 20100330
  10. MORPHINE SULFATE [Concomitant]
     Dosage: 10MG/5ML
     Dates: start: 20111024
  11. FLUOXETINE [Concomitant]
     Dates: start: 20111024
  12. LACTULOSE [Concomitant]
     Indication: CONSTIPATION
     Route: 048
     Dates: start: 20120111
  13. FLUTICASONE PROPIONATE/SALMETEROL [Concomitant]
     Indication: CHRONIC OBSTRUCTIVE PULMONARY DISEASE
     Dosage: 250/25 UNITS NOS
     Route: 045
     Dates: start: 20101109
  14. INFUMORPH [Concomitant]
     Indication: POLYMYALGIA RHEUMATICA
     Dates: start: 20100701
  15. PREGABALIN [Concomitant]
     Indication: POLYMYALGIA RHEUMATICA
     Dates: start: 20111123
  16. ACETAMINOPHEN [Concomitant]
     Indication: OSTEOARTHRITIS
     Dosage: 2 TABS 4 TIMES DAILY
     Route: 048
     Dates: start: 20100401
  17. AMOXICILLIN AND CLAVULANATE POTASSIUM [Concomitant]
     Dosage: 500/125 TABS
     Dates: start: 20111024
  18. ONGLYZA [Suspect]
     Dates: start: 20120112
  19. GLICLAZIDE [Concomitant]
     Indication: TYPE 2 DIABETES MELLITUS
     Route: 048
     Dates: start: 20090105
  20. PAROXETINE [Concomitant]
     Indication: ANXIETY
     Route: 048
     Dates: start: 20111207

REACTIONS (1)
  - LUNG ABSCESS [None]
